FAERS Safety Report 5848500-1 (Version None)
Quarter: 2008Q3

REPORT INFORMATION
  Report Type: 
  Country: None (occurrence: None)
  Receive Date: 20080814
  Receipt Date: 20080730
  Transmission Date: 20090109
  Serious: Yes (Death, Hospitalization)
  Sender: FDA-Public Use
  Company Number: 2008S1013586

PATIENT
  Age: 65 Year
  Sex: Male

DRUGS (8)
  1. NAPROXEN [Suspect]
     Indication: GOUT
  2. GEMZAR [Suspect]
     Indication: NON-SMALL CELL LUNG CANCER
     Dosage: 1250 MG/M2;
     Dates: start: 20080102, end: 20080102
  3. GEMZAR [Suspect]
     Indication: NON-SMALL CELL LUNG CANCER
     Dosage: 1250 MG/M2;
     Dates: start: 20071120
  4. GEMZAR [Suspect]
     Indication: NON-SMALL CELL LUNG CANCER
     Dosage: 1250 MG/M2;
     Dates: start: 20071120
  5. GEMZAR [Suspect]
     Indication: NON-SMALL CELL LUNG CANCER
     Dosage: 1250 MG/M2;
     Dates: start: 20080109
  6. CO-CODAMOL (PANADEINE CO) [Concomitant]
  7. GEMZAR /01215702/ (GEMCITABINE HYDROCHLORIDE) [Concomitant]
  8. NAPROXEN [Concomitant]

REACTIONS (10)
  - ALOPECIA [None]
  - BONE MARROW FAILURE [None]
  - CELLULITIS [None]
  - DYSPNOEA [None]
  - HYPERHIDROSIS [None]
  - MUCOSAL INFLAMMATION [None]
  - PULMONARY OEDEMA [None]
  - RASH ERYTHEMATOUS [None]
  - RENAL FAILURE ACUTE [None]
  - SEPSIS [None]
